FAERS Safety Report 20940353 (Version 3)
Quarter: 2022Q3

REPORT INFORMATION
  Report Type: Spontaneous
  Country: IT (occurrence: IT)
  Receive Date: 20220609
  Receipt Date: 20220707
  Transmission Date: 20221027
  Serious: Yes (Hospitalization, Other)
  Sender: FDA-Public Use
  Company Number: IT-NOVARTISPH-NVSC2022IT119476

PATIENT
  Age: 61 Year
  Sex: Female

DRUGS (3)
  1. BEOVU [Suspect]
     Active Substance: BROLUCIZUMAB-DBLL
     Indication: Choroidal neovascularisation
     Dosage: UNK
     Route: 031
     Dates: start: 20220118
  2. BEOVU [Suspect]
     Active Substance: BROLUCIZUMAB-DBLL
     Dosage: UNK
     Route: 031
     Dates: start: 20220222
  3. BEOVU [Suspect]
     Active Substance: BROLUCIZUMAB-DBLL
     Dosage: UNK
     Route: 031
     Dates: start: 20220329

REACTIONS (13)
  - Retinal detachment [Unknown]
  - Blindness [Unknown]
  - Corneal oedema [Unknown]
  - Mydriasis [Unknown]
  - Angle closure glaucoma [Unknown]
  - Macular oedema [Unknown]
  - Retinal ischaemia [Unknown]
  - Maculopathy [Unknown]
  - Retinal haemorrhage [Unknown]
  - Thromboangiitis obliterans [Unknown]
  - Vitritis [Recovering/Resolving]
  - Hypertonia [Unknown]
  - Keratitis [Unknown]

NARRATIVE: CASE EVENT DATE: 20220408
